FAERS Safety Report 7076275-X (Version None)
Quarter: 2010Q4

REPORT INFORMATION
  Report Type: 
  Country: None (occurrence: None)
  Receive Date: 20101101
  Receipt Date: 20101018
  Transmission Date: 20110411
  Serious: Yes (Other)
  Sender: FDA-Public Use
  Company Number: DE-RANBAXY-2010RR-39018

PATIENT
  Age: 18 Year
  Sex: Male

DRUGS (4)
  1. RISPERIDONE [Suspect]
     Dosage: 6 MG, UNK
  2. QUETIAPINE [Concomitant]
  3. AMISULPRIDE [Concomitant]
  4. SERTINDOLE [Concomitant]

REACTIONS (2)
  - DRUG WITHDRAWAL SYNDROME [None]
  - HALLUCINATION, AUDITORY [None]
